FAERS Safety Report 8141005-7 (Version None)
Quarter: 2012Q1

REPORT INFORMATION
  Report Type: 
  Country: None (occurrence: None)
  Receive Date: 20120216
  Receipt Date: 20120210
  Transmission Date: 20120608
  Serious: Yes (Death, Other)
  Sender: FDA-Public Use
  Company Number: CZ-ASTELLAS-2012US001774

PATIENT
  Sex: Male

DRUGS (1)
  1. ERLOTINIB HYDROCHLORIDE [Suspect]
     Indication: LUNG NEOPLASM MALIGNANT
     Dosage: 100 MG, UID/QD
     Route: 048
     Dates: start: 20110815, end: 20120201

REACTIONS (4)
  - GASTROINTESTINAL NECROSIS [None]
  - INCORRECT DOSE ADMINISTERED [None]
  - NEOPLASM MALIGNANT [None]
  - CARDIAC FAILURE [None]
